FAERS Safety Report 8827719 (Version 2)
Quarter: 2013Q2

REPORT INFORMATION
  Report Type: Report from Study
  Country: DE (occurrence: DE)
  Receive Date: 20121005
  Receipt Date: 20130530
  Transmission Date: 20140414
  Serious: Yes (Hospitalization)
  Sender: FDA-Public Use
  Company Number: DE-ABBOTT-12P-062-0988914-00

PATIENT
  Sex: Male

DRUGS (1)
  1. HUMIRA [Suspect]
     Indication: RHEUMATOID ARTHRITIS
     Route: 058
     Dates: start: 20070808, end: 20120824

REACTIONS (3)
  - Osteitis [Not Recovered/Not Resolved]
  - Inflammation [Not Recovered/Not Resolved]
  - Staphylococcal infection [Not Recovered/Not Resolved]
